FAERS Safety Report 13175204 (Version 1)
Quarter: 2017Q1

REPORT INFORMATION
  Report Type: Report from Study
  Country: TW (occurrence: TW)
  Receive Date: 20170201
  Receipt Date: 20170201
  Transmission Date: 20170428
  Serious: Yes (Hospitalization)
  Sender: FDA-Public Use
  Company Number: TW-JNJFOC-20170118258

PATIENT
  Age: 82 Year
  Sex: Male
  Weight: 71 kg

DRUGS (7)
  1. ALPRAZOLAM. [Concomitant]
     Active Substance: ALPRAZOLAM
     Indication: INSOMNIA
     Route: 048
     Dates: start: 20161024, end: 20170119
  2. SOMA [Concomitant]
     Active Substance: CARISOPRODOL
     Indication: PSORIATIC ARTHROPATHY
     Dosage: 1 CAP
     Route: 048
     Dates: start: 20161112, end: 20170119
  3. ESTAZOLAM. [Concomitant]
     Active Substance: ESTAZOLAM
     Indication: INSOMNIA
     Route: 048
     Dates: start: 20160801, end: 20170119
  4. NICAMETATE [Concomitant]
     Active Substance: NICAMETATE
     Indication: VASODILATATION
     Route: 048
     Dates: start: 20170117, end: 20170119
  5. CELEBREX [Concomitant]
     Active Substance: CELECOXIB
     Indication: PSORIATIC ARTHROPATHY
     Route: 048
     Dates: start: 20160105, end: 20170119
  6. SIMPONI [Suspect]
     Active Substance: GOLIMUMAB
     Indication: PSORIATIC ARTHROPATHY
     Route: 058
     Dates: start: 20160606
  7. LABETALOL [Concomitant]
     Active Substance: LABETALOL\LABETALOL HYDROCHLORIDE
     Indication: HYPERTENSION
     Route: 048
     Dates: start: 20170117

REACTIONS (7)
  - Tooth fracture [Recovering/Resolving]
  - Swelling face [Recovering/Resolving]
  - Stab wound [Recovered/Resolved]
  - Emphysema [Recovering/Resolving]
  - Sinusitis [Recovering/Resolving]
  - Haematoma [Recovering/Resolving]
  - Accident [Unknown]

NARRATIVE: CASE EVENT DATE: 20170119
